FAERS Safety Report 4575499-0 (Version None)
Quarter: 2005Q1

REPORT INFORMATION
  Report Type: 
  Country: None (occurrence: None)
  Receive Date: 20050128
  Receipt Date: 20050128
  Transmission Date: 20050727
  Serious: Yes (Hospitalization)
  Sender: FDA-Public Use
  Company Number: None

PATIENT
  Sex: Female
  Weight: 38.1022 kg

DRUGS (2)
  1. PACLITAXEL [Suspect]
     Indication: CHEMOTHERAPY
     Dosage: 20 MG/M2  DAILY X5    INTRAVENOU
     Route: 042
     Dates: start: 20040913, end: 20041025
  2. CISPLATIN [Suspect]
     Indication: CHEMOTHERAPY
     Dosage: 15 MG/M2   DAILY X5   INTRAVENOU
     Route: 042
     Dates: start: 20040913, end: 20040924

REACTIONS (13)
  - ACUTE RESPIRATORY DISTRESS SYNDROME [None]
  - BRONCHOPLEURAL FISTULA [None]
  - CATHETER SITE HAEMORRHAGE [None]
  - DEHYDRATION [None]
  - DIALYSIS [None]
  - EMPYEMA [None]
  - FEEDING TUBE COMPLICATION [None]
  - LARYNGEAL CANCER [None]
  - NEOPLASM RECURRENCE [None]
  - PNEUMOTHORAX [None]
  - RENAL FAILURE ACUTE [None]
  - SEPTIC SHOCK [None]
  - STAPHYLOCOCCAL SEPSIS [None]
